FAERS Safety Report 18807408 (Version 2)
Quarter: 2021Q1

REPORT INFORMATION
  Report Type: Spontaneous
  Country: US (occurrence: US)
  Receive Date: 20210129
  Receipt Date: 20210224
  Transmission Date: 20210419
  Serious: Yes (Other)
  Sender: FDA-Public Use
  Company Number: US-BAYER-2021-038967

PATIENT
  Age: 31 Year
  Sex: Female
  Weight: 95.69 kg

DRUGS (1)
  1. MIRENA [Suspect]
     Active Substance: LEVONORGESTREL
     Indication: MENORRHAGIA
     Dosage: 20?G PER DAY, CONTINUOUSLY
     Route: 015
     Dates: start: 20200827, end: 20200929

REACTIONS (5)
  - Post procedural haemorrhage [None]
  - Procedural pain [None]
  - Embedded device [Recovered/Resolved]
  - Abdominal pain lower [None]
  - Vulvovaginal pruritus [None]

NARRATIVE: CASE EVENT DATE: 2020
